FAERS Safety Report 24720567 (Version 1)
Quarter: 2024Q4

REPORT INFORMATION
  Report Type: Spontaneous
  Country: US (occurrence: US)
  Receive Date: 20241211
  Receipt Date: 20241211
  Transmission Date: 20250115
  Serious: Yes (Death, Hospitalization)
  Sender: STRIDES
  Company Number: US-STRIDES ARCOLAB LIMITED-2024SP016362

PATIENT

DRUGS (8)
  1. TACROLIMUS [Suspect]
     Active Substance: TACROLIMUS
     Indication: Immune-mediated hepatic disorder
     Dosage: 1 MILLIGRAM, BID
     Route: 065
     Dates: start: 20170927, end: 20171231
  2. MYCOPHENOLATE MOFETIL [Suspect]
     Active Substance: MYCOPHENOLATE MOFETIL
     Indication: Immune-mediated hepatic disorder
     Dosage: 1000 MILLIGRAM, BID
     Route: 065
     Dates: start: 20170727, end: 20170927
  3. PREDNISOLONE [Suspect]
     Active Substance: PREDNISOLONE
     Indication: Immune-mediated enterocolitis
     Dosage: UNK (AT A TAPERING DOSE)
     Route: 048
     Dates: start: 20170330, end: 2017
  4. PREDNISOLONE [Suspect]
     Active Substance: PREDNISOLONE
     Indication: Immune-mediated hepatic disorder
     Dosage: 60 MILLIGRAM, QD
     Route: 048
     Dates: start: 20170727, end: 20170927
  5. PREDNISOLONE [Suspect]
     Active Substance: PREDNISOLONE
     Dosage: 45 MILLIGRAM, QD
     Route: 048
     Dates: start: 20170927, end: 20181018
  6. NIVOLUMAB [Suspect]
     Active Substance: NIVOLUMAB
     Indication: Lung carcinoma cell type unspecified stage IV
     Dosage: UNK, EVERY 3 WEEKS
     Route: 065
     Dates: start: 20160706, end: 20170110
  7. URSODIOL [Suspect]
     Active Substance: URSODIOL
     Indication: Cholangitis sclerosing
     Dosage: UNK
     Route: 065
     Dates: start: 20171027
  8. TOCILIZUMAB [Suspect]
     Active Substance: TOCILIZUMAB
     Indication: Immune-mediated hepatic disorder
     Dosage: UNK
     Route: 065
     Dates: start: 20180417

REACTIONS (5)
  - Drug ineffective [Fatal]
  - Hepatic steatosis [Unknown]
  - Glycogen storage disorder [Unknown]
  - Arthritis [Unknown]
  - Off label use [Unknown]

NARRATIVE: CASE EVENT DATE: 20170101
